FAERS Safety Report 25385327 (Version 1)
Quarter: 2025Q2

REPORT INFORMATION
  Report Type: Spontaneous
  Country: US (occurrence: US)
  Receive Date: 20250602
  Receipt Date: 20250602
  Transmission Date: 20250717
  Serious: Yes (Hospitalization)
  Sender: CHEPLAPHARM
  Company Number: US-CHEPLA-2025006674

PATIENT
  Age: 4 Month
  Sex: Male
  Weight: 4.5999 kg

DRUGS (1)
  1. VALGANCICLOVIR [Suspect]
     Active Substance: VALGANCICLOVIR
     Indication: Congenital cytomegalovirus infection

REACTIONS (4)
  - Varices oesophageal [Recovered/Resolved]
  - Tachycardia [Unknown]
  - Hypotension [Unknown]
  - Off label use [Unknown]
